FAERS Safety Report 10599800 (Version 3)
Quarter: 2016Q3

REPORT INFORMATION
  Report Type: Spontaneous
  Country: US (occurrence: US)
  Receive Date: 20141121
  Receipt Date: 20160916
  Transmission Date: 20161109
  Serious: Yes (Hospitalization, Other)
  Sender: FDA-Public Use
  Company Number: US-ABBVIE-14P-163-1309968-00

PATIENT
  Age: 49 Year
  Sex: Male

DRUGS (1)
  1. ANDROGEL [Suspect]
     Active Substance: TESTOSTERONE
     Indication: PRODUCT USED FOR UNKNOWN INDICATION
     Route: 062
     Dates: start: 2008, end: 2012

REACTIONS (9)
  - Myocardial infarction [Unknown]
  - Coma [Unknown]
  - Emotional disorder [Unknown]
  - Thrombosis [Unknown]
  - Physical disability [Unknown]
  - Injury [Unknown]
  - Renal failure [Unknown]
  - Economic problem [Unknown]
  - Emotional distress [Unknown]

NARRATIVE: CASE EVENT DATE: 20121118
